FAERS Safety Report 20950160 (Version 3)
Quarter: 2022Q3

REPORT INFORMATION
  Report Type: Report from Study
  Country: BR (occurrence: BR)
  Receive Date: 20220613
  Receipt Date: 20220811
  Transmission Date: 20221027
  Serious: No
  Sender: FDA-Public Use
  Company Number: BR-JNJFOC-20220613638

PATIENT
  Age: 57 Year
  Sex: Female
  Weight: 64 kg

DRUGS (1)
  1. REMICADE [Suspect]
     Active Substance: INFLIXIMAB
     Indication: Rheumatoid arthritis
     Route: 041
     Dates: start: 20140814, end: 2019

REACTIONS (5)
  - Sensory loss [Unknown]
  - Adverse event [Unknown]
  - Bedridden [Recovered/Resolved]
  - Dyskinesia [Unknown]
  - Limb deformity [Unknown]

NARRATIVE: CASE EVENT DATE: 20190101
